FAERS Safety Report 5685515-0 (Version None)
Quarter: 2008Q1

REPORT INFORMATION
  Report Type: 
  Country: None (occurrence: None)
  Receive Date: 20080328
  Receipt Date: 20080321
  Transmission Date: 20080703
  Serious: Yes (Other)
  Sender: FDA-Public Use
  Company Number: FR-PFIZER INC-2008026824

PATIENT
  Age: 92 Year
  Sex: Female

DRUGS (1)
  1. XALATAN [Suspect]

REACTIONS (3)
  - CORNEAL OEDEMA [None]
  - ULCERATIVE KERATITIS [None]
  - VISUAL ACUITY REDUCED [None]
